FAERS Safety Report 8338342-X (Version None)
Quarter: 2012Q2

REPORT INFORMATION
  Report Type: 
  Country: None (occurrence: None)
  Receive Date: 20120504
  Receipt Date: 20120426
  Transmission Date: 20120825
  Serious: Yes (Other)
  Sender: FDA-Public Use
  Company Number: US-PFIZER INC-2012103917

PATIENT
  Sex: Male
  Weight: 112.47 kg

DRUGS (10)
  1. REVATIO [Suspect]
     Indication: CHRONIC OBSTRUCTIVE PULMONARY DISEASE
  2. POTASSIUM [Concomitant]
     Dosage: 20 MEQ, UNK
  3. LORCET-HD [Concomitant]
     Dosage: UNK, 2X/DAY (BID 10/65)
  4. TAMSULOSIN HYDROCHLORIDE [Concomitant]
     Dosage: UNK
  5. ACETYLSALICYLIC ACID [Concomitant]
     Dosage: UNK, 2X/DAY (40 BID)
  6. TYVASO [Concomitant]
     Dosage: UNK, 4X/DAY (QID 2 PUFFS (HAD C/O HEADACHE WITH 3)
  7. MAGNESIUM HYDROXIDE TAB [Concomitant]
     Dosage: UNK
  8. REVATIO [Suspect]
     Indication: PULMONARY ARTERIAL HYPERTENSION
     Dosage: 40 MG, 3X/DAY
     Route: 048
  9. XANAX [Concomitant]
     Dosage: UNK
  10. COUMADIN [Concomitant]
     Dosage: UNK

REACTIONS (14)
  - NASOPHARYNGITIS [None]
  - SPLENOMEGALY [None]
  - FATIGUE [None]
  - ASTHENIA [None]
  - BACK PAIN [None]
  - EPISTAXIS [None]
  - BRONCHITIS [None]
  - DYSPNOEA PAROXYSMAL NOCTURNAL [None]
  - VISUAL IMPAIRMENT [None]
  - CHEST PAIN [None]
  - DYSPNOEA [None]
  - WEIGHT INCREASED [None]
  - WEIGHT DECREASED [None]
  - HEADACHE [None]
